FAERS Safety Report 17818618 (Version 2)
Quarter: 2020Q2

REPORT INFORMATION
  Report Type: Spontaneous
  Country: ML (occurrence: ML)
  Receive Date: 20200522
  Receipt Date: 20200530
  Transmission Date: 20200714
  Serious: Yes (Death)
  Sender: FDA-Public Use
  Company Number: NVSC2020ML140936

PATIENT
  Age: 57 Year
  Weight: 61 kg

DRUGS (1)
  1. GLIVEC [Suspect]
     Active Substance: IMATINIB MESYLATE
     Indication: GASTROINTESTINAL STROMAL TUMOUR
     Dosage: 400 MG (4X100 MG)
     Route: 065
     Dates: start: 20191023, end: 20191226

REACTIONS (3)
  - Vomiting [Fatal]
  - General physical health deterioration [Fatal]
  - Abdominal distension [Fatal]

NARRATIVE: CASE EVENT DATE: 20200319
